FAERS Safety Report 7040263-X (Version None)
Quarter: 2010Q4

REPORT INFORMATION
  Report Type: 
  Country: None (occurrence: None)
  Receive Date: 20101012
  Receipt Date: 20101008
  Transmission Date: 20110411
  Serious: Yes (Other)
  Sender: FDA-Public Use
  Company Number: US-PFIZER INC-2010123402

PATIENT
  Age: 31 Year
  Sex: Female

DRUGS (1)
  1. ARTHROTEC [Suspect]
     Indication: INFLAMMATION
     Dosage: 50 MG /200 MG,
     Route: 048
     Dates: start: 20100923, end: 20100926

REACTIONS (3)
  - DIARRHOEA [None]
  - HAEMATEMESIS [None]
  - LOSS OF CONSCIOUSNESS [None]
